FAERS Safety Report 12449906 (Version 2)
Quarter: 2017Q3

REPORT INFORMATION
  Report Type: Spontaneous
  Country: US (occurrence: US)
  Receive Date: 20160609
  Receipt Date: 20170707
  Transmission Date: 20171127
  Serious: No
  Sender: FDA-Public Use
  Company Number: US-JNJFOC-20160517735

PATIENT
  Sex: Male

DRUGS (9)
  1. RISPERDAL [Suspect]
     Active Substance: RISPERIDONE
     Indication: BIPOLAR DISORDER
     Dosage: 0.5MG, 1MG, 2MG
     Route: 048
     Dates: start: 2010, end: 2012
  2. INVEGA [Suspect]
     Active Substance: PALIPERIDONE
     Indication: BIPOLAR DISORDER
     Dosage: 0.5MG, 1MG, 2MG
     Route: 048
     Dates: start: 201011, end: 201203
  3. INVEGA [Suspect]
     Active Substance: PALIPERIDONE
     Indication: ANGER
     Dosage: 0.5MG, 1MG, 2MG
     Route: 048
     Dates: start: 201011, end: 201203
  4. RISPERDAL [Suspect]
     Active Substance: RISPERIDONE
     Indication: ATTENTION DEFICIT/HYPERACTIVITY DISORDER
     Dosage: 0.5MG, 1MG, 2MG
     Route: 048
     Dates: start: 2010, end: 2012
  5. INVEGA [Suspect]
     Active Substance: PALIPERIDONE
     Indication: BIPOLAR DISORDER
     Route: 048
     Dates: start: 201002, end: 201010
  6. INVEGA [Suspect]
     Active Substance: PALIPERIDONE
     Indication: ATTENTION DEFICIT/HYPERACTIVITY DISORDER
     Route: 048
     Dates: start: 201002, end: 201010
  7. INVEGA [Suspect]
     Active Substance: PALIPERIDONE
     Indication: ATTENTION DEFICIT/HYPERACTIVITY DISORDER
     Dosage: 0.5MG, 1MG, 2MG
     Route: 048
     Dates: start: 201011, end: 201203
  8. RISPERDAL [Suspect]
     Active Substance: RISPERIDONE
     Indication: ANGER
     Dosage: 0.5MG, 1MG, 2MG
     Route: 048
     Dates: start: 2010, end: 2012
  9. INVEGA [Suspect]
     Active Substance: PALIPERIDONE
     Indication: ANGER
     Route: 048
     Dates: start: 201002, end: 201010

REACTIONS (2)
  - Extrapyramidal disorder [Unknown]
  - Gynaecomastia [Unknown]

NARRATIVE: CASE EVENT DATE: 2010
